FAERS Safety Report 18889197 (Version 5)
Quarter: 2021Q2

REPORT INFORMATION
  Report Type: Report from Study
  Country: GB (occurrence: GB)
  Receive Date: 20210212
  Receipt Date: 20210526
  Transmission Date: 20210717
  Serious: Yes (Death, Other)
  Sender: FDA-Public Use
  Company Number: GB-GILEAD-2021-0516659

PATIENT
  Age: 70 Year
  Sex: Male

DRUGS (3)
  1. REMDESIVIR. [Suspect]
     Active Substance: REMDESIVIR
     Indication: COVID-19 PNEUMONIA
     Dosage: TWO 10?DAY COURSES WITH A FIVE DAY GAP IN BETWEEN (DAYS 41 AND 54)
     Route: 042
  2. PLASMA [Concomitant]
     Active Substance: HUMAN PLASMA
     Dosage: DAYS 63, 65 AND 95
  3. REMDESIVIR. [Suspect]
     Active Substance: REMDESIVIR
     Dosage: THIRD COURSE AT DAY 93
     Route: 042

REACTIONS (2)
  - Drug ineffective [Unknown]
  - Death [Fatal]
